FAERS Safety Report 4617715-2 (Version None)
Quarter: 2005Q1

REPORT INFORMATION
  Report Type: 
  Country: None (occurrence: None)
  Receive Date: 20050324
  Receipt Date: 20050314
  Transmission Date: 20050727
  Serious: Yes (Other)
  Sender: FDA-Public Use
  Company Number: US-ROCHE-398723

PATIENT
  Age: 47 Year
  Sex: Female

DRUGS (3)
  1. PEGASYS [Suspect]
     Route: 058
     Dates: start: 20041015, end: 20050115
  2. COPEGUS [Suspect]
     Route: 048
     Dates: start: 20041015, end: 20050115
  3. ZOLOFT [Concomitant]
     Indication: DEPRESSION
     Route: 048
     Dates: start: 20040915

REACTIONS (2)
  - ALOPECIA [None]
  - STEVENS-JOHNSON SYNDROME [None]
